FAERS Safety Report 4289927-1 (Version None)
Quarter: 2004Q1

REPORT INFORMATION
  Report Type: 
  Country: None (occurrence: None)
  Receive Date: 20040209
  Receipt Date: 20030919
  Transmission Date: 20041129
  Serious: Yes (Other)
  Sender: FDA-Public Use
  Company Number: 200319579GDDC

PATIENT
  Age: 10 Year
  Sex: Male
  Weight: 32.9 kg

DRUGS (6)
  1. INTAL [Suspect]
     Indication: ASTHMA
     Route: 055
     Dates: start: 20030623, end: 20030911
  2. FLIXOTIDE [Concomitant]
     Route: 055
     Dates: start: 20011130
  3. MONTELUKAST [Concomitant]
     Dosage: DOSE: UNKNOWN
  4. THEOPHYLLINE [Concomitant]
     Dosage: DOSE: UNKNOWN
  5. SALBUTAMOL [Concomitant]
     Indication: ASTHMA
     Dosage: DOSE: 2.5 MG 4-6 HOURLY
     Route: 055
     Dates: start: 19941101
  6. CETIRIZINE HCL [Concomitant]
     Indication: RHINITIS ALLERGIC
     Route: 048
     Dates: start: 19990717

REACTIONS (3)
  - ABNORMAL BEHAVIOUR [None]
  - AGGRESSION [None]
  - AGITATION [None]
